FAERS Safety Report 20577532 (Version 1)
Quarter: 2022Q1

REPORT INFORMATION
  Report Type: Spontaneous
  Country: FR (occurrence: FR)
  Receive Date: 20220310
  Receipt Date: 20220310
  Transmission Date: 20220423
  Serious: Yes (Hospitalization, Other)
  Sender: FDA-Public Use
  Company Number: None

PATIENT
  Age: 47 Year
  Sex: Female

DRUGS (1)
  1. GILENYA [Suspect]
     Active Substance: FINGOLIMOD HYDROCHLORIDE
     Indication: Multiple sclerosis
     Dosage: 0.5 MG, Q24H
     Route: 048
     Dates: start: 2019, end: 20211004

REACTIONS (2)
  - Immune thrombocytopenia [Recovering/Resolving]
  - Cervix injury [Unknown]

NARRATIVE: CASE EVENT DATE: 20210730
